FAERS Safety Report 25951672 (Version 1)
Quarter: 2025Q4

REPORT INFORMATION
  Report Type: Spontaneous
  Country: JP (occurrence: JP)
  Receive Date: 20251023
  Receipt Date: 20251023
  Transmission Date: 20260117
  Serious: Yes (Hospitalization)
  Sender: ASTELLAS
  Company Number: JP-ASTELLAS-2025-AER-057957

PATIENT
  Sex: Male
  Weight: 2 kg

DRUGS (15)
  1. PROGRAF [Suspect]
     Active Substance: TACROLIMUS
     Indication: Liver transplant
     Route: 064
     Dates: start: 20190731, end: 20200402
  2. PROGRAF [Suspect]
     Active Substance: TACROLIMUS
     Route: 063
     Dates: start: 20200403, end: 202101
  3. PROGRAF [Suspect]
     Active Substance: TACROLIMUS
     Indication: Liver transplant
     Route: 064
     Dates: start: 20190731, end: 20191118
  4. BIO-THREE Tablets [Concomitant]
     Indication: Liver transplant
     Route: 064
     Dates: start: 20190731, end: 20200402
  5. BIO-THREE Tablets [Concomitant]
     Route: 063
     Dates: start: 20200403, end: 202101
  6. URSODIOL [Concomitant]
     Active Substance: URSODIOL
     Indication: Liver transplant
     Route: 064
     Dates: start: 20190731, end: 20200402
  7. URSODIOL [Concomitant]
     Active Substance: URSODIOL
     Route: 063
     Dates: start: 20200403, end: 202101
  8. BLOSTAR M Tablets [Concomitant]
     Indication: Gastritis
     Route: 064
     Dates: start: 20200206, end: 20200402
  9. BLOSTAR M Tablets [Concomitant]
     Route: 063
     Dates: start: 20200403, end: 202101
  10. Cefaclor Capsules [Concomitant]
     Indication: Amniotic membrane rupture test
     Route: 064
     Dates: start: 20200221, end: 20200224
  11. Ritodrine tablets [Concomitant]
     Indication: Amniotic membrane rupture test
     Route: 064
     Dates: start: 20200221, end: 20200224
  12. CARBOCYSTEINE [Concomitant]
     Active Substance: CARBOCYSTEINE
     Indication: Rhinitis allergic
     Route: 064
     Dates: start: 20200326, end: 20200402
  13. MONTELUKAST SODIUM [Concomitant]
     Active Substance: MONTELUKAST SODIUM
     Indication: Rhinitis allergic
     Route: 064
     Dates: start: 20200326, end: 20200402
  14. Flunase Nasal [Concomitant]
     Indication: Rhinitis allergic
     Route: 064
     Dates: start: 20200330, end: 20200402
  15. Flunase Nasal [Concomitant]
     Route: 063
     Dates: start: 20200403, end: 202101

REACTIONS (4)
  - Velopharyngeal incompetence [Recovered/Resolved]
  - Low birth weight baby [Unknown]
  - Foetal exposure during pregnancy [Unknown]
  - Exposure via breast milk [Unknown]

NARRATIVE: CASE EVENT DATE: 20190731
